FAERS Safety Report 14665107 (Version 1)
Quarter: 2018Q1

REPORT INFORMATION
  Report Type: Spontaneous
  Country: US (occurrence: US)
  Receive Date: 20180320
  Receipt Date: 20180320
  Transmission Date: 20180509
  Serious: Yes (Hospitalization)
  Sender: FDA-Public Use
  Company Number: None

PATIENT
  Age: 62 Year
  Sex: Male
  Weight: 83.8 kg

DRUGS (2)
  1. DABRAFENIB/TRAMETINIB [Suspect]
     Active Substance: DABRAFENIB\TRAMETINIB
     Dates: start: 20170301, end: 20170501
  2. PEMBROLIZUMAB. [Suspect]
     Active Substance: PEMBROLIZUMAB
     Indication: METASTATIC MALIGNANT MELANOMA
     Dates: start: 20161014, end: 20161229

REACTIONS (3)
  - Guillain-Barre syndrome [None]
  - Radiculopathy [None]
  - Paraesthesia [None]

NARRATIVE: CASE EVENT DATE: 20170517
